FAERS Safety Report 8848841 (Version 2)
Quarter: 2012Q4

REPORT INFORMATION
  Report Type: 
  Country: IE (occurrence: IE)
  Receive Date: 20121018
  Receipt Date: 20121026
  Transmission Date: 20130627
  Serious: Yes (Death)
  Sender: FDA-Public Use
  Company Number: IE-MILLENNIUM PHARMACEUTICALS, INC.-2012-07018

PATIENT

DRUGS (9)
  1. VELCADE [Suspect]
     Indication: MULTIPLE MYELOMA
     Dosage: 1 mg/m2, UNK
     Route: 042
     Dates: start: 20110125, end: 20120522
  2. SYMBICORT [Concomitant]
  3. SOLPADOL [Concomitant]
  4. OXYNORM [Concomitant]
  5. ZOTON [Concomitant]
  6. SPIRIVA [Concomitant]
  7. DEXAMETHASONE                      /00016002/ [Concomitant]
  8. OXYCONTIN [Concomitant]
  9. ALLOPURINOL [Concomitant]

REACTIONS (1)
  - Disease progression [Fatal]
